FAERS Safety Report 9326066 (Version 1)
Quarter: 2013Q2

REPORT INFORMATION
  Report Type: Spontaneous
  Country: CA (occurrence: CA)
  Receive Date: 20130604
  Receipt Date: 20130604
  Transmission Date: 20140414
  Serious: Yes (Hospitalization)
  Sender: FDA-Public Use
  Company Number: CA-SANOFI-AVENTIS-2013SA055325

PATIENT
  Sex: Female

DRUGS (18)
  1. ARAVA [Suspect]
     Dates: start: 2005, end: 20130222
  2. ENBREL [Suspect]
     Dates: start: 20100307, end: 20130222
  3. MTX [Suspect]
     Route: 048
     Dates: start: 2000, end: 20130222
  4. AZELAIC ACID [Concomitant]
  5. DILAUDID [Concomitant]
  6. VITAMIN C [Concomitant]
  7. VALSARTAN [Concomitant]
  8. ANCEF [Concomitant]
  9. FRUCTOSE/LACTOBACILLUS CASEI VAR RHAMNOSUS/MALTODEXTRIN [Concomitant]
  10. VENTOLINE [Concomitant]
  11. VITAMIN D [Concomitant]
  12. VITAMIN B12 [Concomitant]
  13. VANCOMYCIN [Concomitant]
  14. MULTIVITAMINS [Concomitant]
  15. CALCIUM [Concomitant]
  16. FOLIC ACID [Concomitant]
  17. ENOXAPARIN [Concomitant]
  18. HYDROMORPH CONTIN [Concomitant]

REACTIONS (9)
  - Clostridium difficile colitis [Unknown]
  - Bacteraemia [Unknown]
  - Abscess limb [Unknown]
  - Decreased appetite [Not Recovered/Not Resolved]
  - Swelling [Not Recovered/Not Resolved]
  - Localised infection [Unknown]
  - Nausea [Not Recovered/Not Resolved]
  - Pain [Not Recovered/Not Resolved]
  - Musculoskeletal stiffness [Not Recovered/Not Resolved]
